FAERS Safety Report 4399483-5 (Version None)
Quarter: 2004Q2

REPORT INFORMATION
  Report Type: 
  Country: None (occurrence: None)
  Receive Date: 20040621
  Receipt Date: 20040319
  Transmission Date: 20050107
  Serious: Yes (Other)
  Sender: FDA-Public Use
  Company Number: USA-2003-0008751

PATIENT
  Age: 26 Year
  Sex: Female
  Weight: 60.3 kg

DRUGS (2)
  1. OXYCONTIN [Suspect]
     Indication: PAIN
     Dosage: ORAL
     Route: 048
     Dates: start: 19990101, end: 20010601
  2. PERCOCET [Concomitant]

REACTIONS (17)
  - BLOOD PRESSURE INCREASED [None]
  - CHEST PAIN [None]
  - DIARRHOEA [None]
  - DRUG DEPENDENCE [None]
  - DRUG WITHDRAWAL SYNDROME [None]
  - HEADACHE [None]
  - HEART RATE INCREASED [None]
  - HYPERHIDROSIS [None]
  - INSOMNIA [None]
  - IRRITABILITY [None]
  - LIBIDO INCREASED [None]
  - MENSTRUATION IRREGULAR [None]
  - NAUSEA [None]
  - NERVOUSNESS [None]
  - TREMOR [None]
  - VOMITING [None]
  - WEIGHT DECREASED [None]
